FAERS Safety Report 10448054 (Version 2)
Quarter: 2014Q3

REPORT INFORMATION
  Report Type: Report from Study
  Country: US (occurrence: US)
  Receive Date: 20140911
  Receipt Date: 20140911
  Transmission Date: 20150326
  Serious: Yes (Hospitalization, Other)
  Sender: FDA-Public Use
  Company Number: US-BAYER-2014-123593

PATIENT
  Age: 72 Year
  Sex: Female

DRUGS (1)
  1. STIVARGA [Suspect]
     Active Substance: REGORAFENIB
     Indication: COLON CANCER
     Dosage: 160 MG, QD
     Route: 048
     Dates: start: 201408

REACTIONS (8)
  - Nausea [None]
  - Oral pain [None]
  - Aphagia [None]
  - Oral discomfort [None]
  - Dehydration [None]
  - Blood bilirubin increased [None]
  - Blister [None]
  - Kidney infection [None]

NARRATIVE: CASE EVENT DATE: 201408
